FAERS Safety Report 5446450-6 (Version None)
Quarter: 2007Q3

REPORT INFORMATION
  Report Type: 
  Country: None (occurrence: None)
  Receive Date: 20070907
  Receipt Date: 20070828
  Transmission Date: 20080115
  Serious: Yes (Hospitalization)
  Sender: FDA-Public Use
  Company Number: FR-JNJFOC-20070806130

PATIENT
  Age: 58 Year
  Sex: Female

DRUGS (8)
  1. REMICADE [Suspect]
     Route: 042
  2. REMICADE [Suspect]
     Route: 042
  3. REMICADE [Suspect]
     Indication: RHEUMATOID ARTHRITIS
     Route: 042
  4. METHOTREXATE [Concomitant]
     Route: 048
  5. NAPROSYN [Concomitant]
     Route: 048
  6. ACTONEL [Concomitant]
     Route: 048
  7. SPECIAFOLDINE [Concomitant]
     Dosage: 4 DF WEEKLY
     Route: 048
  8. ACETAMINOPHEN [Concomitant]
     Route: 048

REACTIONS (1)
  - LUNG DISORDER [None]
